FAERS Safety Report 24302104 (Version 1)
Quarter: 2024Q3

REPORT INFORMATION
  Report Type: Spontaneous
  Country: MX (occurrence: MX)
  Receive Date: 20240910
  Receipt Date: 20240910
  Transmission Date: 20241017
  Serious: Yes (Hospitalization)
  Sender: BAYER
  Company Number: MX-BAYER-2024A128969

PATIENT
  Age: 34 Year
  Sex: Male

DRUGS (2)
  1. FLANAX [Suspect]
     Active Substance: NAPROXEN SODIUM
     Indication: Synovitis
     Dosage: 1 DF, QD
     Dates: start: 20240902
  2. PREDNISONE [Concomitant]
     Active Substance: PREDNISONE
     Dosage: UNK

REACTIONS (3)
  - Tachycardia [Recovered/Resolved]
  - Headache [Recovered/Resolved]
  - Product use in unapproved indication [None]

NARRATIVE: CASE EVENT DATE: 20240905
